FAERS Safety Report 11558678 (Version 1)
Quarter: 2015Q3

REPORT INFORMATION
  Report Type: Spontaneous
  Country: US (occurrence: None)
  Receive Date: 20150925
  Receipt Date: 20150925
  Transmission Date: 20151125
  Serious: Yes (Other)
  Sender: FDA-Public Use
  Company Number: None

PATIENT
  Age: 79 Year
  Sex: Female
  Weight: 86.18 kg

DRUGS (7)
  1. LASIX [Concomitant]
     Active Substance: FUROSEMIDE
  2. LISINPRI [Concomitant]
  3. DIGOX [Concomitant]
     Active Substance: DIGOXIN
  4. VITAMINS [Concomitant]
     Active Substance: VITAMINS
  5. XARELTO [Suspect]
     Active Substance: RIVAROXABAN
     Indication: ATRIAL FIBRILLATION
     Route: 048
     Dates: start: 20150922, end: 20150923
  6. MACROBID [Concomitant]
     Active Substance: NITROFURANTOIN\NITROFURANTOIN MONOHYDRATE
  7. SOTALOL. [Concomitant]
     Active Substance: SOTALOL

REACTIONS (5)
  - Epistaxis [None]
  - Stomatitis [None]
  - Urinary tract infection [None]
  - Blood urine present [None]
  - Dysuria [None]

NARRATIVE: CASE EVENT DATE: 20150923
